FAERS Safety Report 6694501-3 (Version None)
Quarter: 2010Q2

REPORT INFORMATION
  Report Type: 
  Country: None (occurrence: None)
  Receive Date: 20100423
  Receipt Date: 20100415
  Transmission Date: 20101027
  Serious: Yes (Other)
  Sender: FDA-Public Use
  Company Number: NL-ABBOTT-10P-114-0639309-00

PATIENT
  Sex: Male
  Weight: 75 kg

DRUGS (4)
  1. LUCRIN DEPOT 11.25 MG [Suspect]
     Indication: PROSTATE CANCER
     Route: 058
     Dates: start: 20060710
  2. TRAMADOL HCL [Concomitant]
     Indication: DRUG USE FOR UNKNOWN INDICATION
     Route: 048
  3. SIMVASTATIN [Concomitant]
     Indication: DRUG USE FOR UNKNOWN INDICATION
     Route: 048
  4. NOVOMIX [Concomitant]
     Indication: DRUG USE FOR UNKNOWN INDICATION
     Dosage: ACCORDING TO PRESCRIPTION
     Route: 048

REACTIONS (2)
  - CLAVICLE FRACTURE [None]
  - CONTUSION [None]
